FAERS Safety Report 23081493 (Version 1)
Quarter: 2023Q4

REPORT INFORMATION
  Report Type: Report from Study
  Country: CA (occurrence: None)
  Receive Date: 20231019
  Receipt Date: 20231019
  Transmission Date: 20240109
  Serious: Yes (Other)
  Sender: FDA-Public Use
  Company Number: 2023A235541

PATIENT
  Sex: Male
  Weight: 88 kg

DRUGS (1)
  1. IMFINZI [Suspect]
     Active Substance: DURVALUMAB
     Indication: Gastrointestinal carcinoma
     Route: 042
     Dates: start: 20230811

REACTIONS (1)
  - Toxicity to various agents [Unknown]
